FAERS Safety Report 8809416 (Version 2)
Quarter: 2014Q3

REPORT INFORMATION
  Report Type: Report from Study
  Country: US (occurrence: US)
  Receive Date: 20120926
  Receipt Date: 20140901
  Transmission Date: 20150326
  Serious: Yes (Other)
  Sender: FDA-Public Use
  Company Number: US-ROCHE-1128699

PATIENT
  Sex: Male
  Weight: 98.9 kg

DRUGS (2)
  1. AVASTIN [Suspect]
     Active Substance: BEVACIZUMAB
     Indication: GLIOBLASTOMA
  2. AVASTIN [Suspect]
     Active Substance: BEVACIZUMAB
     Indication: BRAIN NEOPLASM MALIGNANT
     Dosage: DOSE INFUSED: 1000MG
     Route: 042

REACTIONS (5)
  - Balance disorder [Unknown]
  - Convulsion [Unknown]
  - Speech disorder [Unknown]
  - Off label use [Unknown]
  - Headache [Unknown]
